FAERS Safety Report 23298309 (Version 1)
Quarter: 2023Q4

REPORT INFORMATION
  Report Type: Spontaneous
  Country: AT (occurrence: AT)
  Receive Date: 20231214
  Receipt Date: 20231214
  Transmission Date: 20240110
  Serious: Yes (Other)
  Sender: FDA-Public Use
  Company Number: AT-009507513-2311AUT007405

PATIENT
  Age: 68 Year
  Sex: Male
  Weight: 75 kg

DRUGS (1)
  1. PEMBROLIZUMAB [Suspect]
     Active Substance: PEMBROLIZUMAB
     Indication: Metastatic renal cell carcinoma
     Dosage: 200 MILLIGRAM, Q3W

REACTIONS (11)
  - Stevens-Johnson syndrome [Unknown]
  - Acute kidney injury [Unknown]
  - Cytokine release syndrome [Unknown]
  - Tumour lysis syndrome [Unknown]
  - Sleep disorder [Unknown]
  - Depression [Unknown]
  - Stomatitis [Unknown]
  - Hyperlipidaemia [Unknown]
  - Urticaria [Unknown]
  - Hypertension [Unknown]
  - Hyperuricaemia [Unknown]
